FAERS Safety Report 17218965 (Version 1)
Quarter: 2019Q4

REPORT INFORMATION
  Report Type: Spontaneous
  Country: GB (occurrence: GB)
  Receive Date: 20191231
  Receipt Date: 20191231
  Transmission Date: 20200122
  Serious: Yes (Other)
  Sender: FDA-Public Use
  Company Number: GB-MYLANLABS-2019M1130485

PATIENT
  Age: 51 Year
  Sex: Female
  Weight: 64.09 kg

DRUGS (5)
  1. SILKIS [Concomitant]
     Active Substance: CALCITRIOL
     Dosage: 2 DOSAGE FORM, QD
     Dates: start: 20190924
  2. RANITIDINE. [Concomitant]
     Active Substance: RANITIDINE
     Dosage: 300 MILLIGRAM, QD
     Dates: start: 20191023, end: 20191023
  3. NIZATIDINE. [Concomitant]
     Active Substance: NIZATIDINE
     Dosage: ONCE OR TWICE DAILY
     Dates: start: 20191023, end: 20191025
  4. LANSOPRAZOLE. [Suspect]
     Active Substance: LANSOPRAZOLE
     Indication: PRODUCT USED FOR UNKNOWN INDICATION
     Dosage: 15 MILLIGRAM
     Route: 048
  5. LOPERAMIDE [Concomitant]
     Active Substance: LOPERAMIDE
     Dosage: 8 MILLIGRAM, QD
     Dates: start: 20191023

REACTIONS (7)
  - Product substitution issue [Unknown]
  - Rash [Unknown]
  - Burning sensation [Unknown]
  - Pruritus [Unknown]
  - Angioedema [Recovering/Resolving]
  - Eye swelling [Unknown]
  - Vomiting [Unknown]

NARRATIVE: CASE EVENT DATE: 20191026
